FAERS Safety Report 7350054-8 (Version None)
Quarter: 2011Q1

REPORT INFORMATION
  Report Type: 
  Country: None (occurrence: None)
  Receive Date: 20110309
  Receipt Date: 20110309
  Transmission Date: 20110831
  Serious: No
  Sender: FDA-Public Use
  Company Number: None

PATIENT
  Age: 39 Year
  Sex: Female
  Weight: 70.3075 kg

DRUGS (1)
  1. ZOLPIDEM [Suspect]
     Indication: SLEEP DISORDER
     Dosage: 1 PRN / NIGHTLY PO
     Route: 048
     Dates: start: 20110214, end: 20110307

REACTIONS (2)
  - MIDDLE INSOMNIA [None]
  - PRODUCT SUBSTITUTION ISSUE [None]
